FAERS Safety Report 20765806 (Version 1)
Quarter: 2022Q2

REPORT INFORMATION
  Report Type: Spontaneous
  Country: US (occurrence: US)
  Receive Date: 20220428
  Receipt Date: 20220428
  Transmission Date: 20220721
  Serious: No
  Sender: FDA-Public Use
  Company Number: US-PFIZER INC-202101197880

PATIENT
  Age: 71 Year
  Sex: Female
  Weight: 68.04 kg

DRUGS (1)
  1. LYRICA [Suspect]
     Active Substance: PREGABALIN
     Indication: Fibromyalgia
     Dosage: 150 MG, 2X/DAY (CAPSULE, BY MOUTH, TWICE DAY)
     Route: 048

REACTIONS (2)
  - COVID-19 [Recovering/Resolving]
  - Nasal congestion [Unknown]
